FAERS Safety Report 5685103-6 (Version None)
Quarter: 2008Q1

REPORT INFORMATION
  Report Type: 
  Country: None (occurrence: None)
  Receive Date: 20080328
  Receipt Date: 20080324
  Transmission Date: 20080703
  Serious: Yes (Other)
  Sender: FDA-Public Use
  Company Number: GB-BOEHRINGER INGELHEIM GMBH, GERMANY-2008-BP-04647RO

PATIENT
  Age: 67 Year
  Sex: Male

DRUGS (8)
  1. METHOTREXATE [Suspect]
     Indication: RHEUMATOID ARTHRITIS
  2. SULFASALAZINE [Suspect]
     Indication: RHEUMATOID ARTHRITIS
  3. FOLIC ACID [Suspect]
     Indication: RHEUMATOID ARTHRITIS
  4. NONSTEROIDAL ANTI-INFLAMMATORY DRUGS [Suspect]
     Indication: RHEUMATOID ARTHRITIS
  5. GOLD INJECTIONS [Suspect]
     Indication: RHEUMATOID ARTHRITIS
  6. CARBOPLATIN [Suspect]
     Indication: TONSIL CANCER
  7. FLUOROURACIL [Suspect]
     Indication: TONSIL CANCER
  8. FOLINIC ACID [Suspect]
     Indication: TONSIL CANCER

REACTIONS (4)
  - DRUG INEFFECTIVE [None]
  - PRE-EXISTING CONDITION IMPROVED [None]
  - TONSIL CANCER [None]
  - VERTIGO [None]
